FAERS Safety Report 7425972-2 (Version None)
Quarter: 2011Q2

REPORT INFORMATION
  Report Type: 
  Country: None (occurrence: None)
  Receive Date: 20110420
  Receipt Date: 20110411
  Transmission Date: 20111010
  Serious: Yes (Other)
  Sender: FDA-Public Use
  Company Number: ES-ROCHE-770995

PATIENT
  Age: 72 Year
  Sex: Female

DRUGS (1)
  1. CAPECITABINE [Suspect]
     Indication: GASTRIC CANCER
     Dosage: STARTING DOSE: 625 MG/M2 AND MAINTAINENCE DOSE: 625 MG/M2
     Route: 065

REACTIONS (3)
  - DISEASE PROGRESSION [None]
  - DRUG INTOLERANCE [None]
  - EASTERN COOPERATIVE ONCOLOGY GROUP PERFORMANCE STATUS WORSENED [None]
